FAERS Safety Report 10990911 (Version 1)
Quarter: 2015Q2

REPORT INFORMATION
  Report Type: Report from Study
  Country: BR (occurrence: BR)
  Receive Date: 20150406
  Receipt Date: 20150406
  Transmission Date: 20150821
  Serious: Yes (Other)
  Sender: FDA-Public Use
  Company Number: BR-ABBVIE-15K-020-1369535-00

PATIENT
  Age: 61 Year
  Sex: Female
  Weight: 70 kg

DRUGS (2)
  1. HUMIRA [Suspect]
     Active Substance: ADALIMUMAB
     Indication: RHEUMATOID ARTHRITIS
     Route: 058
     Dates: start: 20140917
  2. HUMIRA [Suspect]
     Active Substance: ADALIMUMAB
     Route: 058

REACTIONS (7)
  - Hypertensive crisis [Recovered/Resolved]
  - Headache [Not Recovered/Not Resolved]
  - Nervousness [Unknown]
  - Retinal tear [Unknown]
  - Influenza [Recovered/Resolved]
  - Flank pain [Recovered/Resolved]
  - Posture abnormal [Unknown]

NARRATIVE: CASE EVENT DATE: 2014
